FAERS Safety Report 16551197 (Version 1)
Quarter: 2019Q3

REPORT INFORMATION
  Report Type: Spontaneous
  Country: US (occurrence: US)
  Receive Date: 20190709
  Receipt Date: 20190709
  Transmission Date: 20191004
  Serious: No
  Sender: FDA-Public Use
  Company Number: None

PATIENT
  Age: 58 Year
  Sex: Female

DRUGS (12)
  1. METHOCARBAM TAB 500 MG [Concomitant]
  2. PHENAZOPYRID TAB 200 MG [Concomitant]
  3. MAGNESIUM-OX TAB 400 MG [Concomitant]
  4. ROPINIROLE TB 2 MG [Concomitant]
  5. CLONAZEPAM TAB 1 MG [Concomitant]
     Active Substance: CLONAZEPAM
  6. LEVETIRACETA TAB 500 MG [Concomitant]
  7. DIVALPROEX TAB 500 MG ER [Concomitant]
  8. LOSARTAN POT TAB 50 MG [Concomitant]
  9. CARB/LEVO TAB 25-100 MG [Concomitant]
  10. REPATHA [Suspect]
     Active Substance: EVOLOCUMAB
     Indication: TYPE V HYPERLIPIDAEMIA
     Dosage: ?          OTHER FREQUENCY:EVERY 2 WEEKS;?
     Route: 048
     Dates: start: 20180501
  11. SMZ/TMP DS TAB 800-160 [Concomitant]
     Active Substance: SULFAMETHOXAZOLE\TRIMETHOPRIM
  12. WARFARIN TAB 7.5 MG [Concomitant]

REACTIONS (1)
  - Drug ineffective [None]
